FAERS Safety Report 6984391-3 (Version None)
Quarter: 2010Q3

REPORT INFORMATION
  Report Type: 
  Country: None (occurrence: None)
  Receive Date: 20100915
  Receipt Date: 20100907
  Transmission Date: 20110219
  Serious: Yes (Hospitalization)
  Sender: FDA-Public Use
  Company Number: US-BAYER-201033065NA

PATIENT
  Age: 52 Year
  Sex: Female

DRUGS (6)
  1. BETASERON [Suspect]
     Indication: SECONDARY PROGRESSIVE MULTIPLE SCLEROSIS
     Route: 058
     Dates: start: 20070505, end: 20070515
  2. BETASERON [Suspect]
     Route: 058
     Dates: start: 20070720, end: 20070923
  3. BETASERON [Suspect]
     Route: 058
     Dates: start: 20100329, end: 20100408
  4. BETASERON [Suspect]
     Route: 058
     Dates: start: 20100501, end: 20100601
  5. ACTH [Concomitant]
     Indication: MULTIPLE SCLEROSIS RELAPSE
     Route: 042
     Dates: end: 20100606
  6. TEGRETOL [Concomitant]
     Indication: FACIAL NEURALGIA

REACTIONS (1)
  - MULTIPLE SCLEROSIS RELAPSE [None]
